FAERS Safety Report 22255854 (Version 6)
Quarter: 2023Q4

REPORT INFORMATION
  Report Type: Spontaneous
  Country: CA (occurrence: CA)
  Receive Date: 20230426
  Receipt Date: 20231215
  Transmission Date: 20240110
  Serious: Yes (Other)
  Sender: FDA-Public Use
  Company Number: CA-PFIZER INC-202300168878

PATIENT
  Age: 76 Year
  Sex: Male
  Weight: 68 kg

DRUGS (5)
  1. XELJANZ [Suspect]
     Active Substance: TOFACITINIB CITRATE
     Indication: Colitis ulcerative
     Dosage: 10 MG, ALTERNATE DAY
     Route: 048
     Dates: start: 20230405
  2. XELJANZ [Suspect]
     Active Substance: TOFACITINIB CITRATE
     Dosage: 10 MG, 2X/DAY, BID X 8 WEEKS, THEN 5MG BID
     Route: 048
     Dates: start: 20230405, end: 2023
  3. XELJANZ [Suspect]
     Active Substance: TOFACITINIB CITRATE
     Dosage: 5 MG, 2X/DAY
     Route: 048
     Dates: start: 2023, end: 2023
  4. XELJANZ [Suspect]
     Active Substance: TOFACITINIB CITRATE
     Dosage: 10 MG, 2X/DAY
     Route: 048
     Dates: start: 20231003
  5. PREDNISONE [Concomitant]
     Active Substance: PREDNISONE
     Dosage: UNK

REACTIONS (10)
  - Weight decreased [Unknown]
  - Haematochezia [Unknown]
  - Off label use [Unknown]
  - Loss of personal independence in daily activities [Recovering/Resolving]
  - Frequent bowel movements [Recovering/Resolving]
  - Sleep disorder [Recovering/Resolving]
  - Fatigue [Recovering/Resolving]
  - Weight increased [Unknown]
  - Anaemia [Not Recovered/Not Resolved]
  - Faecal calprotectin increased [Not Recovered/Not Resolved]

NARRATIVE: CASE EVENT DATE: 20230101
